FAERS Safety Report 11446394 (Version 5)
Quarter: 2016Q2

REPORT INFORMATION
  Report Type: Report from Study
  Country: US (occurrence: US)
  Receive Date: 20150902
  Receipt Date: 20160601
  Transmission Date: 20160815
  Serious: Yes (Hospitalization)
  Sender: FDA-Public Use
  Company Number: US-EXELIXIS-XL18415005637

PATIENT
  Age: 62 Year
  Sex: Female
  Weight: 57.3 kg

DRUGS (17)
  1. COLESTIPOL [Concomitant]
     Active Substance: COLESTIPOL
  2. NORVASC [Concomitant]
     Active Substance: AMLODIPINE BESYLATE
  3. COREG [Concomitant]
     Active Substance: CARVEDILOL
  4. XL184 [Suspect]
     Active Substance: CABOZANTINIB
     Dosage: 20 MG, QD
     Route: 048
     Dates: start: 20150901
  5. AMBIEN [Concomitant]
     Active Substance: ZOLPIDEM TARTRATE
  6. DIOVAN [Concomitant]
     Active Substance: VALSARTAN
  7. MAGNESIUM [Concomitant]
     Active Substance: MAGNESIUM
  8. XANAX [Concomitant]
     Active Substance: ALPRAZOLAM
  9. XL184 [Suspect]
     Active Substance: CABOZANTINIB
     Indication: RENAL CELL CARCINOMA
     Dosage: 60 MG, QD
     Route: 048
     Dates: start: 20140925
  10. CALCIUM [Concomitant]
     Active Substance: CALCIUM
  11. LYRICA [Concomitant]
     Active Substance: PREGABALIN
  12. VITAMIN D [Concomitant]
     Active Substance: CHOLECALCIFEROL
  13. SYNTHROID [Concomitant]
     Active Substance: LEVOTHYROXINE SODIUM
  14. XL184 [Suspect]
     Active Substance: CABOZANTINIB
     Dosage: 40 MG, QD
     Route: 048
     Dates: end: 20150824
  15. PRILOSEC [Concomitant]
     Active Substance: OMEPRAZOLE MAGNESIUM
  16. METHOCARBAMOL. [Concomitant]
     Active Substance: METHOCARBAMOL
  17. CLINDAMYCIN [Concomitant]
     Active Substance: CLINDAMYCIN\CLINDAMYCIN PHOSPHATE

REACTIONS (1)
  - Delirium [Recovered/Resolved]

NARRATIVE: CASE EVENT DATE: 20150824
